FAERS Safety Report 5906187-3 (Version None)
Quarter: 2008Q4

REPORT INFORMATION
  Report Type: 
  Country: None (occurrence: None)
  Receive Date: 20081002
  Receipt Date: 20080924
  Transmission Date: 20090506
  Serious: Yes (Other)
  Sender: FDA-Public Use
  Company Number: US-PFIZER INC-2008011214

PATIENT
  Age: 57 Year
  Sex: Female

DRUGS (2)
  1. PREDNISONE [Suspect]
     Indication: LUPUS ENCEPHALITIS
     Dosage: DAILY DOSE:35MG
  2. CHEMOTHERAPY NOS [Suspect]
     Indication: LUPUS ENCEPHALITIS

REACTIONS (4)
  - CATARACT [None]
  - GLAUCOMA [None]
  - OSTEOPOROSIS [None]
  - RENAL FAILURE [None]
